FAERS Safety Report 23815791 (Version 2)
Quarter: 2024Q2

REPORT INFORMATION
  Report Type: Spontaneous
  Country: US (occurrence: US)
  Receive Date: 20240503
  Receipt Date: 20240530
  Transmission Date: 20240715
  Serious: No
  Sender: FDA-Public Use
  Company Number: US-TEVA-VS-3189174

PATIENT
  Age: 58 Year
  Sex: Female

DRUGS (3)
  1. AJOVY [Suspect]
     Active Substance: FREMANEZUMAB-VFRM
     Indication: Product used for unknown indication
     Dosage: 225/1.5 MG/ML MONTHLY
     Route: 065
  2. AJOVY [Suspect]
     Active Substance: FREMANEZUMAB-VFRM
  3. MAXALT [Concomitant]
     Active Substance: RIZATRIPTAN BENZOATE
     Indication: Headache
     Route: 065

REACTIONS (2)
  - Headache [Not Recovered/Not Resolved]
  - Product dose omission issue [Unknown]
